FAERS Safety Report 11529880 (Version 2)
Quarter: 2015Q4

REPORT INFORMATION
  Report Type: Spontaneous
  Country: DE (occurrence: DE)
  Receive Date: 20150921
  Receipt Date: 20151020
  Transmission Date: 20160304
  Serious: Yes (Other)
  Sender: FDA-Public Use
  Company Number: DE-PFIZER INC-2015069942

PATIENT
  Age: 66 Year
  Sex: Female
  Weight: 81 kg

DRUGS (4)
  1. AROMASIN [Suspect]
     Active Substance: EXEMESTANE
     Indication: BREAST CANCER FEMALE
     Dosage: 1 DOSAGE FORMULATION (DF), 1X/DAY
     Route: 048
     Dates: start: 201008, end: 20150205
  2. AROMASIN [Suspect]
     Active Substance: EXEMESTANE
     Indication: BREAST CANCER FEMALE
     Dosage: 1 DOSAGE FORMULATION (DF), 1X/DAY
     Route: 048
     Dates: start: 201008, end: 20150205
  3. RAMIPRIL. [Concomitant]
     Active Substance: RAMIPRIL
     Dosage: UNK
  4. VISKEN [Concomitant]
     Active Substance: PINDOLOL
     Dosage: UNK

REACTIONS (10)
  - Hyperhidrosis [Not Recovered/Not Resolved]
  - Hot flush [Not Recovered/Not Resolved]
  - Visual acuity reduced [Not Recovered/Not Resolved]
  - Muscle spasms [Recovered/Resolved]
  - Decreased appetite [Not Recovered/Not Resolved]
  - Cataract [Unknown]
  - Fatigue [Recovering/Resolving]
  - Sleep disorder [Recovering/Resolving]
  - Ageusia [Not Recovered/Not Resolved]
  - Weight increased [Not Recovered/Not Resolved]

NARRATIVE: CASE EVENT DATE: 201008
